FAERS Safety Report 26179435 (Version 1)
Quarter: 2025Q4

REPORT INFORMATION
  Report Type: Spontaneous
  Country: TR (occurrence: TR)
  Receive Date: 20251219
  Receipt Date: 20251219
  Transmission Date: 20260119
  Serious: Yes (Other)
  Sender: PFIZER
  Company Number: TR-PFIZER INC-PV202500148373

PATIENT
  Age: 27 Year
  Sex: Female

DRUGS (3)
  1. CIBINQO [Suspect]
     Active Substance: ABROCITINIB
     Indication: Dermatitis atopic
  2. TACROLIMUS [Concomitant]
     Active Substance: TACROLIMUS
  3. MOMETASONE FUROATE [Concomitant]
     Active Substance: MOMETASONE FUROATE

REACTIONS (4)
  - Neutropenia [Unknown]
  - Acne [Unknown]
  - Headache [Unknown]
  - Viral upper respiratory tract infection [Unknown]
